FAERS Safety Report 19191433 (Version 4)
Quarter: 2022Q1

REPORT INFORMATION
  Report Type: Spontaneous
  Country: GB (occurrence: GB)
  Receive Date: 20210428
  Receipt Date: 20220302
  Transmission Date: 20220424
  Serious: Yes (Hospitalization, Disabling, Other)
  Sender: FDA-Public Use
  Company Number: GB-KYOWAKIRIN-2019BKK019380

PATIENT
  Age: 22 Year
  Sex: Male

DRUGS (21)
  1. FENTANYL [Suspect]
     Active Substance: FENTANYL
     Indication: Status epilepticus
     Dosage: 300 MICROGRAM/KILOGRAM
     Route: 040
  2. FENTANYL [Suspect]
     Active Substance: FENTANYL
     Indication: Sedation
     Dosage: 300 MICROGRAM/KILOGRAM
     Route: 040
  3. PROPOFOL [Suspect]
     Active Substance: PROPOFOL
     Indication: Sedative therapy
     Dosage: 5 MILLIGRAM/KILOGRAM
     Route: 040
  4. PROPOFOL [Suspect]
     Active Substance: PROPOFOL
     Indication: Status epilepticus
     Dosage: 5 MILLIGRAM/KILOGRAM
     Route: 040
  5. THIOPENTAL SODIUM [Suspect]
     Active Substance: THIOPENTAL SODIUM
     Indication: Status epilepticus
     Dosage: 7 MILLIGRAM/KILOGRAM
     Route: 042
  6. KETAMINE [Suspect]
     Active Substance: KETAMINE
     Indication: Status epilepticus
     Dosage: 6 MILLIGRAM/KILOGRAM
     Route: 065
  7. KETAMINE [Suspect]
     Active Substance: KETAMINE
     Indication: Epilepsy
     Dosage: 6 MILLIGRAM/KILOGRAM
     Route: 065
  8. TOPIRAMATE [Concomitant]
     Active Substance: TOPIRAMATE
     Indication: Status epilepticus
     Dosage: UNK
     Route: 042
  9. PERAMPANEL [Concomitant]
     Active Substance: PERAMPANEL
     Indication: Epilepsy
     Dosage: 14 GRAM
     Route: 065
  10. METHYLPREDNISOLONE [Concomitant]
     Active Substance: METHYLPREDNISOLONE
     Indication: Status epilepticus
     Dosage: 1 GRAM, QD
     Route: 042
  11. LEVETIRACETAM [Concomitant]
     Active Substance: LEVETIRACETAM
     Indication: Epilepsy
     Dosage: UNK
     Route: 065
  12. LACOSAMIDE [Concomitant]
     Active Substance: LACOSAMIDE
     Indication: Status epilepticus
     Dosage: UNK
     Route: 065
  13. CLONAZEPAM [Concomitant]
     Active Substance: CLONAZEPAM
     Indication: Status epilepticus
     Dosage: UNK
     Route: 065
  14. CLONAZEPAM [Concomitant]
     Active Substance: CLONAZEPAM
     Dosage: UNK
     Route: 065
  15. CLONAZEPAM [Concomitant]
     Active Substance: CLONAZEPAM
     Dosage: UNK
     Route: 065
  16. LORAZEPAM [Concomitant]
     Active Substance: LORAZEPAM
     Indication: Epilepsy
     Dosage: UNK
     Route: 065
  17. LORAZEPAM [Concomitant]
     Active Substance: LORAZEPAM
     Indication: Paroxysmal sympathetic hyperactivity
  18. PHENYTOIN [Concomitant]
     Active Substance: PHENYTOIN
     Indication: Status epilepticus
     Dosage: UNK
     Route: 065
  19. CLOBAZAM [Concomitant]
     Active Substance: CLOBAZAM
     Indication: Status epilepticus
     Dosage: UNK
     Route: 065
  20. VALPROATE [Concomitant]
     Active Substance: VALPROIC ACID
     Indication: Status epilepticus
     Dosage: UNK
     Route: 065
  21. VALPROATE SODIUM [Concomitant]
     Active Substance: VALPROATE SODIUM
     Route: 065

REACTIONS (30)
  - Ileus [Unknown]
  - Cognitive disorder [Unknown]
  - Infection [Unknown]
  - Drug hypersensitivity [Unknown]
  - Thrombophlebitis [Unknown]
  - Bradycardia [Unknown]
  - Decubitus ulcer [Unknown]
  - Partial seizures [Not Recovered/Not Resolved]
  - Intensive care unit acquired weakness [Unknown]
  - Muscle contracture [Unknown]
  - Acute kidney injury [Unknown]
  - Fungal infection [Unknown]
  - Behaviour disorder [Unknown]
  - Hypercalcaemia [Unknown]
  - Memory impairment [Unknown]
  - Abdominal compartment syndrome [Unknown]
  - Acute lung injury [Unknown]
  - Anaemia [Unknown]
  - Liver function test abnormal [Unknown]
  - Tachycardia [Unknown]
  - Coagulopathy [Unknown]
  - Hypotension [Unknown]
  - Haematuria traumatic [Unknown]
  - Rash [Unknown]
  - Hypothyroidism [Unknown]
  - Pyrexia [Unknown]
  - Weight decreased [Unknown]
  - Deep vein thrombosis [Unknown]
  - Hypernatraemia [Unknown]
  - Off label use [Unknown]
